FAERS Safety Report 20050661 (Version 3)
Quarter: 2022Q4

REPORT INFORMATION
  Report Type: Spontaneous
  Country: FR (occurrence: FR)
  Receive Date: 20211109
  Receipt Date: 20221018
  Transmission Date: 20230112
  Serious: Yes (Hospitalization)
  Sender: FDA-Public Use
  Company Number: FR-FRESENIUS KABI-FK202111555

PATIENT
  Age: 34 Year
  Sex: Male
  Weight: 64 kg

DRUGS (7)
  1. IRINOTECAN [Suspect]
     Active Substance: IRINOTECAN
     Indication: Hepatic cancer
     Dosage: AT CURE 4 OVER 3 HOURS
     Route: 042
  2. IRINOTECAN [Suspect]
     Active Substance: IRINOTECAN
     Dosage: IRINOTECAN INFUSION,AT CURE 3 IN FIRST TREATMENT
     Route: 042
  3. IRINOTECAN [Suspect]
     Active Substance: IRINOTECAN
     Dosage: 180 MILLIGRAM/SQ. METER
     Route: 041
     Dates: start: 20210115, end: 20210505
  4. OXALIPLATIN [Suspect]
     Active Substance: OXALIPLATIN
     Indication: Hepatic cancer
     Dosage: CURE 2, DOSE WAS REDUCED IN -20 PERCENT AT CURE 2 AND THE ADMINISTRATION WAS OVER 4 HOURS
     Route: 065
  5. OXALIPLATIN [Suspect]
     Active Substance: OXALIPLATIN
     Dosage: AT CURE 3 AT -20 PERCENT OVER 4 HOURS
     Route: 065
  6. OXALIPLATIN [Suspect]
     Active Substance: OXALIPLATIN
     Dosage: AT CURE 4 OVER 2 HOURS
     Route: 065
  7. FLUOROURACIL\IRINOTECAN\LEUCOVORIN\OXALIPLATIN [Suspect]
     Active Substance: FLUOROURACIL\IRINOTECAN\LEUCOVORIN\OXALIPLATIN
     Indication: Hepatic cancer
     Dosage: CURE 1, DAY 1
     Route: 065

REACTIONS (2)
  - Dysarthria [Recovered/Resolved]
  - Vision blurred [Recovered/Resolved]

NARRATIVE: CASE EVENT DATE: 20210115
